FAERS Safety Report 17268588 (Version 1)
Quarter: 2020Q1

REPORT INFORMATION
  Report Type: Spontaneous
  Country: US (occurrence: US)
  Receive Date: 20200114
  Receipt Date: 20200114
  Transmission Date: 20200409
  Serious: No
  Sender: FDA-Public Use
  Company Number: US-BAUSCH-BL-2019-066003

PATIENT
  Age: 25 Year
  Sex: Female

DRUGS (2)
  1. BENZOYL PEROXIDE. [Concomitant]
     Active Substance: BENZOYL PEROXIDE
     Indication: PRODUCT USED FOR UNKNOWN INDICATION
     Dosage: IN MORNINGS
     Route: 061
  2. RETIN-A [Suspect]
     Active Substance: TRETINOIN
     Indication: ACNE
     Dosage: AT NIGHT
     Route: 061
     Dates: start: 201911, end: 201911

REACTIONS (3)
  - Skin exfoliation [Recovered/Resolved]
  - Pruritus [Recovered/Resolved]
  - Eye swelling [Recovered/Resolved]

NARRATIVE: CASE EVENT DATE: 201911
